FAERS Safety Report 6378798-5 (Version None)
Quarter: 2009Q3

REPORT INFORMATION
  Report Type: 
  Country: None (occurrence: None)
  Receive Date: 20090928
  Receipt Date: 20090924
  Transmission Date: 20100115
  Serious: Yes (Other)
  Sender: FDA-Public Use
  Company Number: US-BRISTOL-MYERS SQUIBB COMPANY-14791669

PATIENT
  Age: 44 Year
  Sex: Female
  Weight: 113 kg

DRUGS (1)
  1. ABILIFY [Suspect]
     Indication: DEPRESSION
     Dosage: INITIAL DOSE:5MG
     Dates: end: 20090912

REACTIONS (7)
  - FATIGUE [None]
  - GAIT DISTURBANCE [None]
  - HEPATIC PAIN [None]
  - HEPATOMEGALY [None]
  - MOOD SWINGS [None]
  - MUSCLE ATROPHY [None]
  - RESTLESSNESS [None]
